FAERS Safety Report 18876159 (Version 1)
Quarter: 2021Q1

REPORT INFORMATION
  Report Type: Spontaneous
  Country: DE (occurrence: DE)
  Receive Date: 20210211
  Receipt Date: 20210211
  Transmission Date: 20210420
  Serious: Yes (Other)
  Sender: FDA-Public Use
  Company Number: DE-AUROBINDO-AUR-APL-2021-005266

PATIENT
  Age: 46 Year
  Sex: Male
  Weight: 112 kg

DRUGS (3)
  1. CANDESARTAN. [Concomitant]
     Active Substance: CANDESARTAN
     Indication: PRODUCT USED FOR UNKNOWN INDICATION
     Dosage: 16 MILLIGRAM, ONCE A DAY
     Route: 065
  2. IBUPROFEN 400 MG FILM?COATED TABLET [Suspect]
     Active Substance: IBUPROFEN
     Indication: ARTHRITIS
     Dosage: 3 DOSAGE FORM, 3 TIMES A DAY,IBU 400 JE 1/1/1
     Route: 048
     Dates: start: 20210128
  3. CORTISONE [Interacting]
     Active Substance: CORTISONE
     Indication: ARTHRITIS
     Dosage: 1 DOSAGE FORM
     Route: 065
     Dates: start: 20210128

REACTIONS (3)
  - Drug interaction [Unknown]
  - Ocular hypertension [Unknown]
  - Erythema [Unknown]

NARRATIVE: CASE EVENT DATE: 20210129
